FAERS Safety Report 5428359-7 (Version None)
Quarter: 2007Q3

REPORT INFORMATION
  Report Type: 
  Country: None (occurrence: None)
  Receive Date: 20070824
  Receipt Date: 20070813
  Transmission Date: 20080115
  Serious: Yes (Hospitalization)
  Sender: FDA-Public Use
  Company Number: 2007BI012458

PATIENT
  Age: 65 Year
  Sex: Female

DRUGS (9)
  1. NATALIZUMAB [Suspect]
     Indication: MULTIPLE SCLEROSIS
     Dosage: 300 MG; QM; IV
     Route: 042
     Dates: start: 20061113, end: 20070703
  2. AVONEX [Concomitant]
  3. LEVAQUIN [Concomitant]
  4. DIFLUCAN [Concomitant]
  5. COREG [Concomitant]
  6. ASPIRIN [Concomitant]
  7. RISPERDAL [Concomitant]
  8. MIRALAX [Concomitant]
  9. HERBAL (NOS) [Concomitant]

REACTIONS (12)
  - ANAEMIA [None]
  - CARDIAC FAILURE CONGESTIVE [None]
  - CARDIOMYOPATHY [None]
  - CONSTIPATION [None]
  - CYSTITIS [None]
  - DECUBITUS ULCER [None]
  - DEHYDRATION [None]
  - DYSARTHRIA [None]
  - DYSPHAGIA [None]
  - ELECTROCARDIOGRAM T WAVE INVERSION [None]
  - STAPHYLOCOCCAL INFECTION [None]
  - URINARY TRACT INFECTION [None]
